FAERS Safety Report 24739924 (Version 1)
Quarter: 2024Q4

REPORT INFORMATION
  Report Type: Spontaneous
  Country: LB (occurrence: LB)
  Receive Date: 20241216
  Receipt Date: 20241216
  Transmission Date: 20250115
  Serious: Yes (Life-Threatening, Hospitalization, Other)
  Sender: PURDUE
  Company Number: LB-NAPPMUNDI-GBR-2024-0122109

PATIENT
  Age: 72 Year
  Sex: Female

DRUGS (3)
  1. MORPHINE SULFATE [Suspect]
     Active Substance: MORPHINE SULFATE
     Indication: Postoperative analgesia
     Dosage: 1 MILLILITER
     Route: 037
  2. MORPHINE SULFATE [Suspect]
     Active Substance: MORPHINE SULFATE
     Indication: Postoperative analgesia
     Dosage: 1 MILLILITER
     Route: 037
  3. BUPIVACAINE [Concomitant]
     Active Substance: BUPIVACAINE
     Indication: Anaesthesia
     Dosage: 2 ML HYPERBARIC / 7ML ISOBARIC WAS DONE UNDER ULTRASOUND
     Route: 037

REACTIONS (2)
  - Circulatory collapse [Unknown]
  - Accidental exposure to product [Unknown]
